FAERS Safety Report 26188858 (Version 1)
Quarter: 2025Q4

REPORT INFORMATION
  Report Type: Report from Study
  Country: CA (occurrence: CA)
  Receive Date: 20251222
  Receipt Date: 20251222
  Transmission Date: 20260117
  Serious: Yes (Hospitalization)
  Sender: ABBVIE
  Company Number: CA-ABBVIE-6568003

PATIENT
  Age: 82 Year
  Sex: Female

DRUGS (2)
  1. SKYRIZI [Suspect]
     Active Substance: RISANKIZUMAB-RZAA
     Indication: Crohn^s disease
     Dosage: FORM STRENGTH: 360MG/2.4ML, SOLUTION FOR INJECTION IN PRE-FILLED INJECTOR?AT WEEK 12 AND EVERY EI...
     Route: 058
  2. ZOPICLONE [Concomitant]
     Active Substance: ZOPICLONE
     Indication: Product used for unknown indication

REACTIONS (5)
  - Status epilepticus [Recovering/Resolving]
  - Orthostatic hypotension [Unknown]
  - Fall [Recovering/Resolving]
  - Social problem [Unknown]
  - Dizziness [Unknown]

NARRATIVE: CASE EVENT DATE: 20251117
